FAERS Safety Report 8984791 (Version 2)
Quarter: 2013Q1

REPORT INFORMATION
  Report Type: Report from Study
  Country: US (occurrence: US)
  Receive Date: 20121226
  Receipt Date: 20130214
  Transmission Date: 20140127
  Serious: Yes (Hospitalization, Other)
  Sender: FDA-Public Use
  Company Number: US-ASTRAZENECA-2009UW08555

PATIENT
  Age: 79 Year
  Sex: Male

DRUGS (24)
  1. LASIX [Concomitant]
     Route: 048
  2. ALBUTEROL [Concomitant]
  3. ZESTRIL [Suspect]
     Route: 048
  4. ZESTRIL [Suspect]
     Dosage: GENERIC
     Route: 048
  5. TOPROL XL [Suspect]
     Indication: ATRIAL FIBRILLATION
     Route: 048
     Dates: start: 2004
  6. TOPROL XL [Suspect]
     Indication: ATRIAL FIBRILLATION
     Route: 048
  7. TOPROL XL [Suspect]
     Indication: ATRIAL FIBRILLATION
     Route: 048
  8. TOPROL XL [Suspect]
     Indication: ATRIAL FIBRILLATION
     Dosage: GENERIC
     Route: 048
  9. METOPROLOL TARTRATE [Suspect]
     Route: 048
  10. ASPIRIN [Suspect]
     Route: 048
  11. COUMADIN [Concomitant]
     Dosage: ON MONDAY, WEDNESDAY AND FRIDAY
     Route: 048
  12. COUMADIN [Concomitant]
     Dosage: ON SUNDAY, TUESDAY, THURSDAY AND SATURDAY
     Route: 048
  13. AVODART [Concomitant]
     Route: 048
  14. FLOMAX [Concomitant]
     Route: 048
  15. VITAMIN E [Concomitant]
     Route: 048
  16. LEVEMIR [Concomitant]
     Dosage: 110 UNITS TWICE DAILY DOUBLR VERIFIED DOSE
     Route: 058
  17. GARLIC [Concomitant]
     Route: 048
  18. OMEGA 3 [Concomitant]
     Route: 048
  19. POTASSIUM [Concomitant]
     Route: 048
  20. FUROSEMIDE [Concomitant]
     Route: 048
  21. VITAMIN D [Concomitant]
     Dosage: 50000 UNITS EVERY THURSDAY
     Route: 048
  22. TRICOR [Concomitant]
  23. WARFARIN [Concomitant]
     Indication: ATRIAL FIBRILLATION
  24. WARFARIN [Concomitant]
     Indication: ATRIAL FIBRILLATION

REACTIONS (19)
  - Transient ischaemic attack [Unknown]
  - Cerebral infarction [Unknown]
  - Atrial fibrillation [Unknown]
  - Adverse drug reaction [Unknown]
  - Diabetic nephropathy [Unknown]
  - Diabetic neuropathy [Unknown]
  - Skin ulcer [Unknown]
  - Sleep apnoea syndrome [Unknown]
  - Diabetic ulcer [Unknown]
  - Neuropathic arthropathy [Unknown]
  - Blood pressure increased [Unknown]
  - Blood pressure abnormal [Unknown]
  - Hallucination [Unknown]
  - Visual impairment [Unknown]
  - Type 1 diabetes mellitus [Unknown]
  - Hyperlipidaemia [Unknown]
  - Drug hypersensitivity [Unknown]
  - Drug ineffective [Unknown]
  - Drug dose omission [Unknown]
